FAERS Safety Report 7351590-0 (Version None)
Quarter: 2011Q1

REPORT INFORMATION
  Report Type: 
  Country: None (occurrence: None)
  Receive Date: 20110314
  Receipt Date: 20110311
  Transmission Date: 20110831
  Serious: Yes (Hospitalization)
  Sender: FDA-Public Use
  Company Number: IT-BRISTOL-MYERS SQUIBB COMPANY-15454283

PATIENT
  Age: 46 Year
  Sex: Male
  Weight: 53 kg

DRUGS (6)
  1. CETUXIMAB [Suspect]
     Indication: HEAD AND NECK CANCER
     Dosage: 22NOV-UNK:400MG/M2 UNK TO 30DEC10:250MG/M2(WEEKLY); LAST DOSE:30DEC2010,DAY 1 OF CYCLE.
     Route: 042
     Dates: start: 20101122
  2. FOLIC ACID [Concomitant]
     Indication: PROPHYLAXIS
     Dates: start: 20101103
  3. CISPLATIN [Suspect]
     Indication: HEAD AND NECK CANCER
     Dosage: LAST DOSE:22NOV2010
     Route: 042
     Dates: start: 20101122, end: 20101122
  4. DEXAMETHASONE [Concomitant]
     Indication: PROPHYLAXIS
     Dates: start: 20101123
  5. PEMETREXED DISODIUM [Suspect]
     Indication: HEAD AND NECK CANCER
     Dosage: VIAL LAST DOSE:22NOV2010
     Route: 042
     Dates: start: 20101122, end: 20101122
  6. VITAMIN B-12 [Concomitant]
     Indication: PROPHYLAXIS
     Dates: start: 20101103

REACTIONS (2)
  - PNEUMONITIS [None]
  - TUMOUR PAIN [None]
